FAERS Safety Report 9198833 (Version 1)
Quarter: 2013Q1

REPORT INFORMATION
  Report Type: Spontaneous
  Country: BG (occurrence: BG)
  Receive Date: 20130329
  Receipt Date: 20130329
  Transmission Date: 20140127
  Serious: Yes (Death, Disabling, Other)
  Sender: FDA-Public Use
  Company Number: BG-009507513-1303BGR012381

PATIENT
  Age: 51 Year
  Sex: Male

DRUGS (2)
  1. JANUMET [Suspect]
     Indication: TYPE 2 DIABETES MELLITUS
     Dosage: 1/2 A TABLET TWICE DAILY
     Route: 048
     Dates: start: 201209
  2. JANUMET [Suspect]
     Dosage: 1 DF, BID (100 MG/1700 MG)
     Route: 048
     Dates: start: 201210

REACTIONS (1)
  - Myocardial infarction [Fatal]
